FAERS Safety Report 4638380-4 (Version None)
Quarter: 2005Q2

REPORT INFORMATION
  Report Type: 
  Country: None (occurrence: None)
  Receive Date: 20050415
  Receipt Date: 20050411
  Transmission Date: 20051028
  Serious: Yes (Hospitalization, Other)
  Sender: FDA-Public Use
  Company Number: 2005-03-1072

PATIENT
  Age: 40 Year
  Sex: Female
  Weight: 63 kg

DRUGS (7)
  1. TEMODAL [Suspect]
     Indication: GLIOBLASTOMA
     Dosage: 120 MG
     Dates: start: 20030221, end: 20050317
  2. RADIATION THERAPY [Concomitant]
  3. NEURONTIN [Concomitant]
  4. DIFFU-K CAPSULES [Concomitant]
  5. OMEPRAZOLE [Concomitant]
  6. EFFERALGAN CODEINE [Concomitant]
  7. PREDNISOLONE [Concomitant]

REACTIONS (3)
  - BRAIN OEDEMA [None]
  - CEREBRAL VENOUS THROMBOSIS [None]
  - INTRACRANIAL PRESSURE INCREASED [None]
